FAERS Safety Report 22334365 (Version 1)
Quarter: 2023Q2

REPORT INFORMATION
  Report Type: Spontaneous
  Country: US (occurrence: US)
  Receive Date: 20230517
  Receipt Date: 20230517
  Transmission Date: 20230721
  Serious: No
  Sender: FDA-Public Use
  Company Number: US-BAUSCHBL-2023BNL004164

PATIENT
  Age: 73 Year
  Sex: Female

DRUGS (7)
  1. LUMIFY [Suspect]
     Active Substance: BRIMONIDINE TARTRATE
     Indication: Ocular hyperaemia
     Dosage: AS NEEDED.
     Route: 047
     Dates: start: 2022, end: 20230512
  2. LUMIFY [Suspect]
     Active Substance: BRIMONIDINE TARTRATE
  3. KEPPRA [Concomitant]
     Active Substance: LEVETIRACETAM
     Indication: Product used for unknown indication
     Dosage: AS NEEDED
     Route: 048
  4. ACETAMINOPHEN\CAFFEINE [Concomitant]
     Active Substance: ACETAMINOPHEN\CAFFEINE
     Indication: Product used for unknown indication
     Dosage: CHEWED, AS NEEDED.
     Route: 048
  5. NEURIVA BRAIN PERFORMANCE PLUS [Concomitant]
     Indication: Product used for unknown indication
     Route: 048
     Dates: start: 2020
  6. VITAMIN D3 [Concomitant]
     Active Substance: CHOLECALCIFEROL
     Indication: Product used for unknown indication
     Route: 048
  7. ZINC [Concomitant]
     Active Substance: ZINC
     Indication: Product used for unknown indication
     Route: 048

REACTIONS (2)
  - Vision blurred [Recovering/Resolving]
  - Expired product administered [Unknown]

NARRATIVE: CASE EVENT DATE: 20220101
